FAERS Safety Report 7341861-6 (Version None)
Quarter: 2011Q1

REPORT INFORMATION
  Report Type: 
  Country: None (occurrence: None)
  Receive Date: 20110309
  Receipt Date: 20110228
  Transmission Date: 20110831
  Serious: Yes (Death, Hospitalization, Other)
  Sender: FDA-Public Use
  Company Number: NL-CELGENEUS-114-21880-09071857

PATIENT
  Sex: Male
  Weight: 72.8 kg

DRUGS (6)
  1. COTRIM [Concomitant]
     Indication: PROPHYLAXIS
     Route: 065
     Dates: start: 20090101
  2. PREDNISOLONE [Concomitant]
     Dosage: 10 MILLIGRAM
     Route: 065
     Dates: start: 20090127
  3. VALACICLOVIR [Concomitant]
     Indication: PROPHYLAXIS
     Dosage: 400 MILLIGRAM
     Route: 065
     Dates: start: 20090101, end: 20090213
  4. REVLIMID [Suspect]
     Indication: MANTLE CELL LYMPHOMA
     Dosage: 5 MILLIGRAM
     Route: 048
     Dates: start: 20090616, end: 20090811
  5. CYDEXQNA [Concomitant]
     Indication: PROPHYLAXIS
     Dosage: 1500 MILLIGRAM
     Dates: start: 20090101
  6. PANTAZOL [Concomitant]
     Indication: PROPHYLAXIS
     Dosage: 20 MILLIGRAM
     Route: 065
     Dates: start: 20090101

REACTIONS (3)
  - PANCYTOPENIA [None]
  - PYREXIA [None]
  - MANTLE CELL LYMPHOMA [None]
